FAERS Safety Report 24240307 (Version 3)
Quarter: 2024Q4

REPORT INFORMATION
  Report Type: Report from Study
  Country: CN (occurrence: CN)
  Receive Date: 20240822
  Receipt Date: 20241002
  Transmission Date: 20250114
  Serious: Yes (Other)
  Sender: NOVARTIS
  Company Number: CN-002147023-NVSC2024CN156381

PATIENT
  Sex: Male
  Weight: 90 kg

DRUGS (4)
  1. LEQVIO [Suspect]
     Active Substance: INCLISIRAN SODIUM
     Indication: Hyperlipidaemia
     Dosage: 1 DOSAGE FORM (UNDER THE SKIN, USUALLY ADMINISTERED BY INJECTION)
     Route: 058
     Dates: start: 20240419, end: 20240419
  2. LEQVIO [Suspect]
     Active Substance: INCLISIRAN SODIUM
     Dosage: 1 DOSAGE FORM (UNDER THE SKIN, USUALLY ADMINISTERED BY INJECTION)
     Route: 058
     Dates: start: 20240725
  3. UNSPECIFIED INGREDIENT [Suspect]
     Active Substance: UNSPECIFIED INGREDIENT
     Indication: Product used for unknown indication
     Dosage: UNK
     Route: 048
  4. ASPIRIN [Suspect]
     Active Substance: ASPIRIN
     Indication: Product used for unknown indication
     Dosage: UNK
     Route: 048

REACTIONS (4)
  - Gastric haemorrhage [Recovered/Resolved]
  - Drug ineffective [Unknown]
  - Blood triglycerides increased [Unknown]
  - Low density lipoprotein decreased [Unknown]

NARRATIVE: CASE EVENT DATE: 20240101
